FAERS Safety Report 4692178-X (Version None)
Quarter: 2005Q2

REPORT INFORMATION
  Report Type: 
  Country: None (occurrence: None)
  Receive Date: 20050614
  Receipt Date: 20050523
  Transmission Date: 20051028
  Serious: Yes (Hospitalization)
  Sender: FDA-Public Use
  Company Number: DSA_26471_2005

PATIENT
  Age: 40 Year
  Sex: Male
  Weight: 67 kg

DRUGS (9)
  1. DILTIAZEM HCL [Suspect]
     Indication: HYPERTENSION
     Dosage: 300 MG BID
  2. PRAZOSIN [Suspect]
     Dosage: 5 MG Q DAY
  3. FUROSEMIDE [Suspect]
     Dosage: 500 MG Q DAY
  4. LAMIVUDINE [Concomitant]
  5. STAVUDINE [Concomitant]
  6. SAGUINAVIR [Concomitant]
  7. RITONAVIR [Concomitant]
  8. NPH INSULIN [Concomitant]
  9. LISPRO INSULIN [Concomitant]

REACTIONS (3)
  - ENZYME INHIBITION [None]
  - IMMUNOSUPPRESSANT DRUG LEVEL INCREASED [None]
  - RENAL TRANSPLANT [None]
